FAERS Safety Report 20633659 (Version 1)
Quarter: 2022Q1

REPORT INFORMATION
  Report Type: Report from Study
  Country: CN (occurrence: None)
  Receive Date: 20220324
  Receipt Date: 20220324
  Transmission Date: 20220423
  Serious: Yes (Hospitalization)
  Sender: FDA-Public Use
  Company Number: CN-ROCHE-2006554

PATIENT
  Age: 49 Year
  Sex: Female
  Weight: 45 kg

DRUGS (11)
  1. PERTUZUMAB [Suspect]
     Active Substance: PERTUZUMAB
     Indication: HER2 positive breast cancer
     Dosage: LOADING DOSE?DATE OF MOST RECENT DOSE PRIOR TO ONSET OF SAE: 15/SEP/2017
     Route: 042
     Dates: start: 20170126
  2. PERTUZUMAB [Suspect]
     Active Substance: PERTUZUMAB
     Dosage: MAINTENANCE DOSE
     Route: 042
  3. TRASTUZUMAB [Suspect]
     Active Substance: TRASTUZUMAB
     Indication: HER2 positive breast cancer
     Dosage: LOADING DOSE.?DATE OF MOST RECENT DOSE PRIOR TO ONSET OF SAE: 15/SEP/2017.
     Route: 042
     Dates: start: 20170126
  4. TRASTUZUMAB [Suspect]
     Active Substance: TRASTUZUMAB
     Dosage: MAINTENANCE DOSE.
     Route: 042
  5. DOCETAXEL [Suspect]
     Active Substance: DOCETAXEL
     Indication: HER2 positive breast cancer
     Dosage: DATE OF MOST RECENT DOSE PRIOR TO ONSET OF SAE: 31/MAR/2017
     Route: 042
     Dates: start: 20170126
  6. FLUOROURACIL [Suspect]
     Active Substance: FLUOROURACIL
     Indication: HER2 positive breast cancer
     Dosage: DATE OF MOST RECENT DOSE PRIOR TO ONSET OF SAE: 14/JUL/2017
     Route: 042
     Dates: start: 20170602
  7. EPIRUBICIN HYDROCHLORIDE [Suspect]
     Active Substance: EPIRUBICIN HYDROCHLORIDE
     Indication: HER2 positive breast cancer
     Dosage: DATE OF MOST RECENT DOSE PRIOR TO ONSET OF SAE: 14/JUL/2017
     Route: 042
     Dates: start: 20170602
  8. CYCLOPHOSPHAMIDE [Suspect]
     Active Substance: CYCLOPHOSPHAMIDE
     Indication: HER2 positive breast cancer
     Dosage: DATE OF MOST RECENT DOSE PRIOR TO ONSET OF SAE: 14/JUL/2017
     Route: 042
     Dates: start: 20170602
  9. RUI BAI [Concomitant]
     Dates: start: 20170831, end: 20170901
  10. CEFTIZOXIME SODIUM [Concomitant]
     Active Substance: CEFTIZOXIME SODIUM
     Indication: Pneumonia
     Dates: start: 20171005, end: 20171007
  11. BROMHEXINE HYDROCHLORIDE [Concomitant]
     Active Substance: BROMHEXINE HYDROCHLORIDE
     Indication: Pneumonia
     Dates: start: 20171005, end: 20171007

REACTIONS (1)
  - Palpitations [Recovered/Resolved]

NARRATIVE: CASE EVENT DATE: 20171001
